FAERS Safety Report 24838091 (Version 1)
Quarter: 2025Q1

REPORT INFORMATION
  Report Type: Spontaneous
  Country: US (occurrence: US)
  Receive Date: 20250113
  Receipt Date: 20250113
  Transmission Date: 20250408
  Serious: Yes (Other)
  Sender: RIGEL PHARMACEUTICALS
  Company Number: US-RIGEL Pharmaceuticals, INC-20250100054

PATIENT
  Age: 71 Year
  Sex: Female

DRUGS (5)
  1. PRALSETINIB [Suspect]
     Active Substance: PRALSETINIB
     Indication: Non-small cell lung cancer
     Dosage: 400 MILLIGRAM, QD
     Route: 065
  2. PRALSETINIB [Suspect]
     Active Substance: PRALSETINIB
     Route: 065
  3. PRALSETINIB [Suspect]
     Active Substance: PRALSETINIB
     Route: 065
  4. PRALSETINIB [Suspect]
     Active Substance: PRALSETINIB
     Route: 065
  5. PRALSETINIB [Suspect]
     Active Substance: PRALSETINIB
     Route: 065

REACTIONS (1)
  - Colitis microscopic [Unknown]
